FAERS Safety Report 9510165 (Version 2)
Quarter: 2013Q3

REPORT INFORMATION
  Report Type: Spontaneous
  Country: US (occurrence: US)
  Receive Date: 20130909
  Receipt Date: 20130909
  Transmission Date: 20140515
  Serious: No
  Sender: FDA-Public Use
  Company Number: US-BRISTOL-MYERS SQUIBB COMPANY-18728949

PATIENT
  Sex: Male

DRUGS (2)
  1. ABILIFY [Suspect]
     Indication: SCHIZOPHRENIA
     Dosage: RECENT DOSE: 28-MAR-2013
     Dates: start: 201111
  2. CELEBREX [Concomitant]

REACTIONS (2)
  - Nasopharyngitis [Unknown]
  - Dizziness [Unknown]
